FAERS Safety Report 11583733 (Version 1)
Quarter: 2015Q4

REPORT INFORMATION
  Report Type: Spontaneous
  Country: US (occurrence: US)
  Receive Date: 20151001
  Receipt Date: 20151001
  Transmission Date: 20160304
  Serious: No
  Sender: FDA-Public Use
  Company Number: US-ROCHE-658434

PATIENT
  Age: 50 Year
  Sex: Male

DRUGS (3)
  1. FENTANYL. [Concomitant]
     Active Substance: FENTANYL
     Indication: BACK PAIN
     Route: 065
  2. PEGASYS [Suspect]
     Active Substance: PEGINTERFERON ALFA-2A
     Indication: HEPATITIS C
     Dosage: FORM: PFS
     Route: 065
  3. RIBAVIRIN. [Suspect]
     Active Substance: RIBAVIRIN
     Indication: HEPATITIS C
     Dosage: DIVIDED DOSES
     Route: 065

REACTIONS (20)
  - Skin ulcer [Not Recovered/Not Resolved]
  - Anxiety [Unknown]
  - Anaemia [Not Recovered/Not Resolved]
  - Alopecia [Unknown]
  - Eye pain [Not Recovered/Not Resolved]
  - Skin abrasion [Unknown]
  - Dry mouth [Not Recovered/Not Resolved]
  - Dysgeusia [Not Recovered/Not Resolved]
  - Weight decreased [Unknown]
  - Ear pain [Unknown]
  - Pain [Unknown]
  - Insomnia [Unknown]
  - Cheilitis [Unknown]
  - Nasal ulcer [Unknown]
  - Memory impairment [Unknown]
  - Plicated tongue [Not Recovered/Not Resolved]
  - Vomiting [Unknown]
  - Nausea [Not Recovered/Not Resolved]
  - Depression [Unknown]
  - Abdominal pain [Unknown]

NARRATIVE: CASE EVENT DATE: 2009
